FAERS Safety Report 19864826 (Version 3)
Quarter: 2022Q1

REPORT INFORMATION
  Report Type: Spontaneous
  Country: JP (occurrence: JP)
  Receive Date: 20210921
  Receipt Date: 20220303
  Transmission Date: 20220423
  Serious: Yes (Death)
  Sender: FDA-Public Use
  Company Number: JP-PFIZER INC-202101206814

PATIENT
  Age: 45 Year
  Sex: Female
  Weight: 79.4 kg

DRUGS (7)
  1. LORLATINIB [Suspect]
     Active Substance: LORLATINIB
     Indication: Non-small cell lung cancer
     Dosage: 100 MG, DAILY
     Route: 048
     Dates: start: 20191002, end: 20200205
  2. BEVACIZUMAB [Suspect]
     Active Substance: BEVACIZUMAB
     Dosage: UNK
     Dates: start: 202002
  3. DOCETAXEL [Suspect]
     Active Substance: DOCETAXEL
  4. CARBOPLATIN [Suspect]
     Active Substance: CARBOPLATIN
     Dosage: UNK
     Dates: start: 202002
  5. PEMETREXED [Suspect]
     Active Substance: PEMETREXED
     Dosage: UNK
     Dates: start: 202002
  6. ATEZOLIZUMAB [Suspect]
     Active Substance: ATEZOLIZUMAB
  7. BEZAFIBRATE [Concomitant]
     Active Substance: BEZAFIBRATE
     Indication: Hyperlipidaemia
     Dosage: 200 MG, 2X/DAY
     Route: 048
     Dates: start: 20191004, end: 20200204

REACTIONS (1)
  - Neoplasm progression [Fatal]
